FAERS Safety Report 9698164 (Version 1)
Quarter: 2013Q4

REPORT INFORMATION
  Report Type: Spontaneous
  Country: US (occurrence: None)
  Receive Date: 20131114
  Receipt Date: 20131114
  Transmission Date: 20140711
  Serious: Yes (Hospitalization)
  Sender: FDA-Public Use
  Company Number: 2013038886

PATIENT
  Sex: Male
  Weight: 79.38 kg

DRUGS (18)
  1. HIZENTRA (IMMUNOGLOBULIN HUMAN NORMAL) [Suspect]
     Indication: IMMUNODEFICIENCY COMMON VARIABLE
     Dosage: 14 G 1X/WEEK, 2 GM 10 ML VIAL: 5 SITES OVER 1-2 HOURS) ?
     Route: 058
  2. ACETAMINOPHEN (PARACETAMOL) [Concomitant]
  3. DIPHENHYDRAMINE (DIPHENHYDRAMINE) [Concomitant]
  4. LIDOCAINE (LIDOCAINE) [Concomitant]
  5. PRILOCAINE (PRILOCAINE) [Concomitant]
  6. EPIPEN (EPINEPHRINE) [Concomitant]
  7. LISINOPRIL (LISINOPRIL) [Concomitant]
  8. IRON (IRON) [Concomitant]
  9. METOPROLOL (METOPROLOL) [Concomitant]
  10. DIGOXIN (DIGOXIN) [Concomitant]
  11. DILTIAZEM [Concomitant]
  12. PRILOSEC [Concomitant]
  13. OXYGEN (OXYGEN) [Concomitant]
  14. NEURONTIN (GABAPENTIN) [Concomitant]
  15. LAMOTRIGINE (LAMOTRIGINE) [Concomitant]
  16. TERAZOSIN (TERAZOSIN) [Concomitant]
  17. DUONEB (COMBIVENT /01261001/) [Concomitant]
  18. CARBIDOPA-LEVO (SINEMET) [Concomitant]

REACTIONS (2)
  - Dyspnoea [None]
  - Cardiac disorder [None]
